FAERS Safety Report 7527918-5 (Version None)
Quarter: 2011Q2

REPORT INFORMATION
  Report Type: 
  Country: None (occurrence: None)
  Receive Date: 20110531
  Receipt Date: 20110429
  Transmission Date: 20111010
  Serious: Yes (Hospitalization)
  Sender: FDA-Public Use
  Company Number: 2011CP000074

PATIENT
  Age: 5 Month
  Sex: Female
  Weight: 6.9 kg

DRUGS (3)
  1. ACETAMINOPHEN [Suspect]
     Indication: INTUSSUSCEPTION
     Dosage: 75 MG/KG;X1;IV
  2. OPIOIDS [Concomitant]
  3. MORPHINE [Concomitant]

REACTIONS (7)
  - INTERNATIONAL NORMALISED RATIO INCREASED [None]
  - BLOOD BILIRUBIN INCREASED [None]
  - LIVER DISORDER [None]
  - ALANINE AMINOTRANSFERASE INCREASED [None]
  - ASPARTATE AMINOTRANSFERASE INCREASED [None]
  - ACCIDENTAL OVERDOSE [None]
  - PROTHROMBIN TIME PROLONGED [None]
